FAERS Safety Report 12548468 (Version 1)
Quarter: 2016Q3

REPORT INFORMATION
  Report Type: Spontaneous
  Country: US (occurrence: None)
  Receive Date: 20160711
  Receipt Date: 20160711
  Transmission Date: 20161109
  Serious: Yes (Other)
  Sender: FDA-Public Use
  Company Number: None

PATIENT
  Age: 89 Year
  Sex: Male
  Weight: 63 kg

DRUGS (2)
  1. COLACE [Suspect]
     Active Substance: DOCUSATE SODIUM
     Indication: CONSTIPATION
     Route: 048
     Dates: start: 20160627, end: 20160701
  2. COLACE [Suspect]
     Active Substance: DOCUSATE SODIUM

REACTIONS (3)
  - Sputum culture positive [None]
  - Product contamination microbial [None]
  - Burkholderia test positive [None]

NARRATIVE: CASE EVENT DATE: 20160703
